FAERS Safety Report 5863430-7 (Version None)
Quarter: 2008Q3

REPORT INFORMATION
  Report Type: 
  Country: None (occurrence: None)
  Receive Date: 20080828
  Receipt Date: 20080828
  Transmission Date: 20090109
  Serious: Yes (Death)
  Sender: FDA-Public Use
  Company Number: PHEH1996US00928

PATIENT
  Sex: Male

DRUGS (6)
  1. ONCOLAR SAS05+ [Suspect]
     Route: 030
     Dates: start: 19960515, end: 19960515
  2. GLUCOTROL [Concomitant]
  3. TRENTAL [Concomitant]
  4. ACCUPRIL [Concomitant]
  5. PROCARDIA XL [Concomitant]
  6. MS CONTIN [Concomitant]

REACTIONS (4)
  - CIRCULATORY COLLAPSE [None]
  - DEATH [None]
  - DIABETIC COMA [None]
  - RENAL FAILURE ACUTE [None]
